FAERS Safety Report 5976440-6 (Version None)
Quarter: 2008Q4

REPORT INFORMATION
  Report Type: 
  Country: None (occurrence: None)
  Receive Date: 20081126
  Receipt Date: 20081118
  Transmission Date: 20090506
  Serious: Yes (Hospitalization)
  Sender: FDA-Public Use
  Company Number: APP200801162

PATIENT
  Age: 71 Year
  Sex: Male
  Weight: 86 kg

DRUGS (7)
  1. HEPARIN SODIUM INJECTION [Suspect]
     Indication: THROMBECTOMY
     Dosage: 2000 USP UNITS, ONCE, INTRAVENOUS
     Route: 042
     Dates: start: 20081107, end: 20081107
  2. HEPARIN SODIUM INJECTION [Suspect]
  3. HEPARIN SODIUM INJECTION [Suspect]
  4. HEPARIN SODIUM INJECTION [Concomitant]
  5. HEPARIN SODIUM INJECTION [Suspect]
  6. ACTIVASE [Concomitant]
  7. ANGIOMAX [Concomitant]

REACTIONS (2)
  - DRUG INEFFECTIVE [None]
  - PULSE ABSENT [None]
